FAERS Safety Report 8549648-3 (Version None)
Quarter: 2012Q3

REPORT INFORMATION
  Report Type: 
  Country: None (occurrence: None)
  Receive Date: 20120730
  Receipt Date: 20120716
  Transmission Date: 20120928
  Serious: Yes (Hospitalization)
  Sender: FDA-Public Use
  Company Number: US-MYLANLABS-2012S1014868

PATIENT
  Age: 58 Year
  Sex: Male

DRUGS (8)
  1. LISINOPRIL AND HYDROCHLOROTHIAZIDE [Concomitant]
     Dosage: LISINOPRIL/HYDROCHLOROTHIAZIDE 20/12.5MG DAILY
     Route: 065
  2. AMOXICILLIN AND CLAVULANATE POTASSIUM [Concomitant]
     Indication: OTITIS MEDIA
     Route: 065
  3. CEFDINIR [Concomitant]
     Indication: OTITIS MEDIA
     Route: 065
  4. CEFDINIR [Concomitant]
     Indication: EXTERNAL EAR CELLULITIS
     Route: 065
  5. SIMVASTATIN [Suspect]
     Dosage: 20MG DAILY
     Route: 065
  6. LEVOFLOXACIN [Suspect]
     Indication: EXTERNAL EAR CELLULITIS
     Dosage: 750MG DAILY
     Route: 065
  7. AMOXICILLIN AND CLAVULANATE POTASSIUM [Concomitant]
     Indication: EXTERNAL EAR CELLULITIS
     Route: 065
  8. LEVOFLOXACIN [Suspect]
     Indication: OTITIS MEDIA
     Dosage: 750MG DAILY
     Route: 065

REACTIONS (1)
  - TENDON DISORDER [None]
